FAERS Safety Report 24066094 (Version 1)
Quarter: 2024Q3

REPORT INFORMATION
  Report Type: Spontaneous
  Country: CN (occurrence: CN)
  Receive Date: 20240709
  Receipt Date: 20240709
  Transmission Date: 20241016
  Serious: Yes (Other)
  Sender: ROCHE
  Company Number: CN-ROCHE-10000009250

PATIENT
  Age: 53 Year
  Sex: Male

DRUGS (2)
  1. BEVACIZUMAB [Suspect]
     Active Substance: BEVACIZUMAB
     Indication: Hepatic cancer
     Route: 065
  2. ENTECAVIR [Concomitant]
     Active Substance: ENTECAVIR
     Route: 048

REACTIONS (1)
  - Toxic epidermal necrolysis [Recovered/Resolved]
